FAERS Safety Report 23902570 (Version 3)
Quarter: 2025Q1

REPORT INFORMATION
  Report Type: Spontaneous
  Country: ES (occurrence: ES)
  Receive Date: 20240527
  Receipt Date: 20250310
  Transmission Date: 20250409
  Serious: Yes (Other)
  Sender: NOVO NORDISK
  Company Number: ES-NOVOPROD-1226257

PATIENT
  Age: 55 Year
  Sex: Female

DRUGS (2)
  1. VAGIFEM [Suspect]
     Active Substance: ESTRADIOL
     Indication: Inadequate lubrication
     Dosage: 10 ?G, QW
     Route: 067
     Dates: start: 2019, end: 202405
  2. VAGIFEM [Suspect]
     Active Substance: ESTRADIOL
     Route: 067
     Dates: start: 202405, end: 202405

REACTIONS (5)
  - Vulvovaginal injury [Recovered/Resolved]
  - Application site pain [Recovered/Resolved]
  - Application site haemorrhage [Recovered/Resolved]
  - Inappropriate schedule of product administration [Recovered/Resolved]
  - Product use in unapproved indication [Recovered/Resolved]

NARRATIVE: CASE EVENT DATE: 20190101
